FAERS Safety Report 15448100 (Version 1)
Quarter: 2018Q3

REPORT INFORMATION
  Report Type: Report from Study
  Country: US (occurrence: US)
  Receive Date: 20180928
  Receipt Date: 20180928
  Transmission Date: 20181010
  Serious: Yes (Hospitalization, Other)
  Sender: FDA-Public Use
  Company Number: US-BRISTOL-MYERS SQUIBB COMPANY-BMS-2018-072103

PATIENT
  Age: 60 Year
  Sex: Male
  Weight: 71.2 kg

DRUGS (10)
  1. METOPROLOL. [Concomitant]
     Active Substance: METOPROLOL
     Indication: PRODUCT USED FOR UNKNOWN INDICATION
     Dosage: 50 MG, UNK
     Route: 065
     Dates: start: 20161228
  2. ALBUTEROL                          /00139501/ [Concomitant]
     Active Substance: ALBUTEROL
     Indication: PRODUCT USED FOR UNKNOWN INDICATION
     Dosage: UNK
     Route: 065
     Dates: start: 2017
  3. NIVOLUMAB [Suspect]
     Active Substance: NIVOLUMAB
     Indication: MALIGNANT MELANOMA
     Dosage: 360 MG, Q3WK
     Route: 042
     Dates: start: 20180222
  4. FLUTICASONE. [Concomitant]
     Active Substance: FLUTICASONE
     Indication: PRODUCT USED FOR UNKNOWN INDICATION
     Dosage: 1 DF, UNK
     Route: 050
     Dates: start: 20171216, end: 20180724
  5. NKTR?214 [Suspect]
     Active Substance: INVESTIGATIONAL PRODUCT
     Indication: MALIGNANT MELANOMA
     Dosage: 0.006 MG/KG, Q3WK
     Route: 042
     Dates: start: 20180222, end: 20180712
  6. NKTR?214 [Suspect]
     Active Substance: INVESTIGATIONAL PRODUCT
     Indication: PRODUCT USED FOR UNKNOWN INDICATION
     Dosage: 0.003 UNK, UNK
     Route: 042
     Dates: start: 20180712
  7. ESCITALOPRAM [Concomitant]
     Active Substance: ESCITALOPRAM OXALATE
     Indication: PRODUCT USED FOR UNKNOWN INDICATION
     Dosage: 5 MG, UNK
     Route: 065
     Dates: start: 20171201
  8. RIVAROXABAN [Concomitant]
     Active Substance: RIVAROXABAN
     Indication: PRODUCT USED FOR UNKNOWN INDICATION
     Dosage: 20 MG, UNK
     Route: 065
     Dates: start: 20161226
  9. BUDESONIDE. [Concomitant]
     Active Substance: BUDESONIDE
     Indication: PRODUCT USED FOR UNKNOWN INDICATION
     Dosage: 1 DF, UNK
     Route: 050
     Dates: start: 20161026, end: 20180724
  10. GABAPENTIN. [Concomitant]
     Active Substance: GABAPENTIN
     Indication: PRODUCT USED FOR UNKNOWN INDICATION
     Dosage: 300 MG, UNK
     Route: 065

REACTIONS (1)
  - Bronchopulmonary aspergillosis [Recovered/Resolved]

NARRATIVE: CASE EVENT DATE: 20180719
